FAERS Safety Report 19815195 (Version 2)
Quarter: 2022Q1

REPORT INFORMATION
  Report Type: Spontaneous
  Country: CA (occurrence: CA)
  Receive Date: 20210909
  Receipt Date: 20220304
  Transmission Date: 20220423
  Serious: Yes (Hospitalization, Other)
  Sender: FDA-Public Use
  Company Number: CA-SAMSUNG BIOEPIS-SB-2021-21200

PATIENT
  Age: 76 Year
  Sex: Female
  Weight: 55 kg

DRUGS (7)
  1. INFLIXIMAB [Suspect]
     Active Substance: INFLIXIMAB
     Indication: Crohn^s disease
     Route: 042
  2. ALENDRONATE SODIUM [Concomitant]
     Active Substance: ALENDRONATE SODIUM
     Indication: Product used for unknown indication
     Route: 065
  3. ARIPIPRAZOLE [Concomitant]
     Active Substance: ARIPIPRAZOLE
     Indication: Product used for unknown indication
     Route: 065
  4. CALCIUM [Concomitant]
     Active Substance: CALCIUM
     Indication: Product used for unknown indication
     Route: 065
  5. ERGOCALCIFEROL [Concomitant]
     Active Substance: ERGOCALCIFEROL
     Indication: Product used for unknown indication
     Route: 065
  6. PREDNISONE [Concomitant]
     Active Substance: PREDNISONE
     Indication: Product used for unknown indication
     Route: 065
  7. SYNTHROID [Concomitant]
     Active Substance: LEVOTHYROXINE SODIUM
     Indication: Product used for unknown indication
     Route: 065

REACTIONS (14)
  - Blood pressure systolic increased [Unknown]
  - Clostridium test positive [Unknown]
  - Diverticulitis [Unknown]
  - Tachycardia [Unknown]
  - Fatigue [Unknown]
  - Head discomfort [Unknown]
  - Headache [Unknown]
  - Musculoskeletal discomfort [Unknown]
  - Myalgia [Unknown]
  - Pain [Unknown]
  - Type 2 diabetes mellitus [Unknown]
  - Loss of personal independence in daily activities [Unknown]
  - Intentional product use issue [Unknown]
  - Off label use [Unknown]
